FAERS Safety Report 7587541-3 (Version None)
Quarter: 2011Q3

REPORT INFORMATION
  Report Type: 
  Country: None (occurrence: None)
  Receive Date: 20110704
  Receipt Date: 20110620
  Transmission Date: 20111222
  Serious: Yes (Other)
  Sender: FDA-Public Use
  Company Number: PHHY2010MX48983

PATIENT
  Sex: Female

DRUGS (1)
  1. DIOVAN HCT [Suspect]
     Indication: HYPERTENSION
     Dosage: ONE TABLET (80/12.5 MG ) PER DAY
     Dates: start: 20090601

REACTIONS (5)
  - DISLOCATION OF VERTEBRA [None]
  - INFLUENZA [None]
  - FALL [None]
  - PNEUMONIA [None]
  - PYREXIA [None]
